FAERS Safety Report 6373791-0 (Version None)
Quarter: 2009Q3

REPORT INFORMATION
  Report Type: 
  Country: None (occurrence: None)
  Receive Date: 20090924
  Receipt Date: 20090601
  Transmission Date: 20100115
  Serious: Yes (Other)
  Sender: FDA-Public Use
  Company Number: US-ASTRAZENECA-2009UW13994

PATIENT
  Age: 60 Year
  Sex: Female

DRUGS (4)
  1. SEROQUEL [Suspect]
     Route: 048
  2. LEXAPRO [Concomitant]
  3. ZYPREXA [Concomitant]
  4. AVALIDE [Concomitant]

REACTIONS (1)
  - TARDIVE DYSKINESIA [None]
